FAERS Safety Report 12143306 (Version 1)
Quarter: 2016Q1

REPORT INFORMATION
  Report Type: Spontaneous
  Country: AU (occurrence: AU)
  Receive Date: 20160304
  Receipt Date: 20160304
  Transmission Date: 20160526
  Serious: Yes (Hospitalization, Other)
  Sender: FDA-Public Use
  Company Number: AU-009507513-1603AUS001496

PATIENT
  Sex: Female

DRUGS (3)
  1. OMBITASVIR (+) PARITAPREVIR (+) RITONAVIR [Suspect]
     Active Substance: OMBITASVIR\PARITAPREVIR\RITONAVIR
     Dosage: DOSE UNSPECIFIED
  2. RIBAVIRIN. [Suspect]
     Active Substance: RIBAVIRIN
     Dosage: 1000 MILLIGRAM
     Route: 048
  3. DASABUVIR [Suspect]
     Active Substance: DASABUVIR

REACTIONS (6)
  - Jaundice [Recovering/Resolving]
  - Hypophagia [Recovering/Resolving]
  - Hepatic failure [Recovering/Resolving]
  - Ascites [Recovering/Resolving]
  - Blood albumin increased [Recovering/Resolving]
  - Cachexia [Recovering/Resolving]
